FAERS Safety Report 8588293-0 (Version None)
Quarter: 2012Q3

REPORT INFORMATION
  Report Type: 
  Country: None (occurrence: None)
  Receive Date: 20120813
  Receipt Date: 20120809
  Transmission Date: 20120928
  Serious: Yes (Death, Hospitalization, Other)
  Sender: FDA-Public Use
  Company Number: GB-SHIRE-ALL1-2012-03801

PATIENT
  Sex: Male

DRUGS (1)
  1. VPRIV [Suspect]
     Indication: GAUCHER'S DISEASE
     Dosage: 1800 IU, 1X/2WKS
     Route: 041
     Dates: start: 20100327

REACTIONS (5)
  - OFF LABEL USE [None]
  - LOWER RESPIRATORY TRACT INFECTION [None]
  - CONVULSION [None]
  - DEATH [None]
  - MYOCLONUS [None]
